FAERS Safety Report 24575831 (Version 1)
Quarter: 2024Q4

REPORT INFORMATION
  Report Type: Spontaneous
  Country: US (occurrence: None)
  Receive Date: 20241102
  Receipt Date: 20241102
  Transmission Date: 20250115
  Serious: Yes (Hospitalization)
  Sender: Public
  Company Number: None

PATIENT
  Age: 75 Year
  Sex: Female
  Weight: 68 kg

DRUGS (2)
  1. PEMBROLIZUMAB [Suspect]
     Active Substance: PEMBROLIZUMAB
     Dates: end: 20241009
  2. ALIMTA [Suspect]
     Active Substance: PEMETREXED DISODIUM
     Dates: end: 20240815

REACTIONS (5)
  - Acute kidney injury [None]
  - Hypercalcaemia [None]
  - Therapy interrupted [None]
  - Laboratory test abnormal [None]
  - Hypokalaemia [None]

NARRATIVE: CASE EVENT DATE: 20241030
